FAERS Safety Report 6971798-3 (Version None)
Quarter: 2010Q3

REPORT INFORMATION
  Report Type: 
  Country: None (occurrence: None)
  Receive Date: 20100908
  Receipt Date: 20100906
  Transmission Date: 20110219
  Serious: Yes (Other)
  Sender: FDA-Public Use
  Company Number: ES-MERCK-1009ESP00008

PATIENT
  Age: 24 Month
  Sex: Male

DRUGS (6)
  1. SINGULAIR [Suspect]
     Indication: ASTHMA
     Route: 048
     Dates: start: 20080915, end: 20090107
  2. SINGULAIR [Suspect]
     Route: 048
     Dates: start: 20090413, end: 20090401
  3. SINGULAIR [Suspect]
     Indication: BRONCHITIS
     Route: 048
     Dates: start: 20080915, end: 20090107
  4. SINGULAIR [Suspect]
     Route: 048
     Dates: start: 20090413, end: 20090401
  5. BUDESONIDE [Concomitant]
     Indication: ASTHMA
     Route: 055
  6. FLUTICASONE PROPIONATE AND SALMETEROL XINAFOATE [Concomitant]
     Indication: ASTHMA
     Route: 055

REACTIONS (3)
  - ASTHMATIC CRISIS [None]
  - CONSTIPATION [None]
  - UPPER RESPIRATORY TRACT INFLAMMATION [None]
